FAERS Safety Report 12776316 (Version 1)
Quarter: 2016Q3

REPORT INFORMATION
  Report Type: Spontaneous
  Country: US (occurrence: US)
  Receive Date: 20160923
  Receipt Date: 20160923
  Transmission Date: 20161109
  Serious: Yes (Hospitalization)
  Sender: FDA-Public Use
  Company Number: US-AMNEAL PHARMACEUTICALS-2016AMN00616

PATIENT
  Age: 63 Year
  Sex: Male

DRUGS (5)
  1. NAPROXEN. [Suspect]
     Active Substance: NAPROXEN
  2. NEXIUM [Concomitant]
     Active Substance: ESOMEPRAZOLE MAGNESIUM
     Dosage: UNK
     Dates: start: 20130728, end: 20140422
  3. LISINOPRIL. [Concomitant]
     Active Substance: LISINOPRIL
  4. SILDENAFIL. [Concomitant]
     Active Substance: SILDENAFIL
     Dosage: UNK
     Dates: start: 20121120
  5. PRAVASTATIN. [Concomitant]
     Active Substance: PRAVASTATIN
     Dosage: UNK
     Dates: start: 200501

REACTIONS (1)
  - Acute myocardial infarction [Recovered/Resolved]
